FAERS Safety Report 5177207-1 (Version None)
Quarter: 2006Q4

REPORT INFORMATION
  Report Type: 
  Country: None (occurrence: None)
  Receive Date: 20061218
  Receipt Date: 20061201
  Transmission Date: 20070319
  Serious: Yes (Other)
  Sender: FDA-Public Use
  Company Number: US-ROCHE-473815

PATIENT
  Age: 35 Year
  Sex: Female

DRUGS (2)
  1. KLONOPIN [Suspect]
     Indication: PANIC DISORDER
     Route: 048
     Dates: start: 20060115
  2. VENLAFAXINE HCL [Suspect]
     Indication: DEPRESSION
     Route: 048
     Dates: start: 20030115

REACTIONS (1)
  - OPTIC NEUROPATHY [None]
